FAERS Safety Report 21298547 (Version 2)
Quarter: 2022Q3

REPORT INFORMATION
  Report Type: Spontaneous
  Country: GR (occurrence: GR)
  Receive Date: 20220906
  Receipt Date: 20220912
  Transmission Date: 20221027
  Serious: Yes (Death, Other)
  Sender: FDA-Public Use
  Company Number: GR-PFIZER INC-PV202200050623

PATIENT
  Age: 67 Year
  Sex: Male

DRUGS (10)
  1. TIGECYCLINE [Suspect]
     Active Substance: TIGECYCLINE
     Indication: Acinetobacter test positive
  2. TIGECYCLINE [Suspect]
     Active Substance: TIGECYCLINE
     Indication: Candida infection
  3. ANIDULAFUNGIN [Suspect]
     Active Substance: ANIDULAFUNGIN
     Indication: Acinetobacter test positive
  4. ANIDULAFUNGIN [Suspect]
     Active Substance: ANIDULAFUNGIN
     Indication: Candida infection
  5. AMPICILLIN SODIUM\SULBACTAM SODIUM [Suspect]
     Active Substance: AMPICILLIN SODIUM\SULBACTAM SODIUM
     Indication: Acinetobacter test positive
  6. AMPICILLIN SODIUM\SULBACTAM SODIUM [Suspect]
     Active Substance: AMPICILLIN SODIUM\SULBACTAM SODIUM
     Indication: Candida infection
  7. COLISTIN [Suspect]
     Active Substance: COLISTIN
     Indication: Acinetobacter test positive
  8. COLISTIN [Suspect]
     Active Substance: COLISTIN
     Indication: Candida infection
  9. TEICOPLANIN [Suspect]
     Active Substance: TEICOPLANIN
     Indication: Acinetobacter test positive
  10. TEICOPLANIN [Suspect]
     Active Substance: TEICOPLANIN
     Indication: Candida infection

REACTIONS (4)
  - Ventricular tachycardia [Fatal]
  - Depressed level of consciousness [Unknown]
  - Respiratory rate increased [Unknown]
  - Respiratory acidosis [Unknown]
